FAERS Safety Report 11224472 (Version 1)
Quarter: 2015Q2

REPORT INFORMATION
  Report Type: Spontaneous
  Country: US (occurrence: US)
  Receive Date: 20150629
  Receipt Date: 20150629
  Transmission Date: 20150821
  Serious: No
  Sender: FDA-Public Use
  Company Number: US-BIOGENIDEC-2015BI087405

PATIENT
  Age: 40 Year
  Sex: Female

DRUGS (1)
  1. TECFIDERA [Suspect]
     Active Substance: DIMETHYL FUMARATE
     Indication: MULTIPLE SCLEROSIS
     Dates: start: 20150417

REACTIONS (8)
  - Gastrointestinal disorder [Unknown]
  - Asthenia [Recovered/Resolved]
  - Abdominal pain upper [Recovered/Resolved]
  - Discomfort [Unknown]
  - Swelling face [Unknown]
  - Peripheral swelling [Unknown]
  - Abdominal distension [Unknown]
  - Somnolence [Unknown]

NARRATIVE: CASE EVENT DATE: 20150417
